FAERS Safety Report 15347623 (Version 1)
Quarter: 2018Q3

REPORT INFORMATION
  Report Type: Spontaneous
  Country: US (occurrence: US)
  Receive Date: 20180904
  Receipt Date: 20180904
  Transmission Date: 20181010
  Serious: Yes (Other)
  Sender: FDA-Public Use
  Company Number: US-SA-2018SA175430

PATIENT
  Age: 57 Year
  Sex: Female
  Weight: 81 kg

DRUGS (6)
  1. TRASTUZUMAB. [Concomitant]
     Active Substance: TRASTUZUMAB
     Dosage: UNK
  2. PEGFILGRASTIM [Concomitant]
     Active Substance: PEGFILGRASTIM
  3. HEPARIN [Concomitant]
     Active Substance: HEPARIN SODIUM
  4. TAXOTERE [Suspect]
     Active Substance: DOCETAXEL
     Indication: BREAST CANCER
     Dosage: 136?140 MG
     Route: 042
     Dates: start: 20141007, end: 20141007
  5. CARBOPLATIN. [Concomitant]
     Active Substance: CARBOPLATIN
     Route: 065
  6. TAXOTERE [Suspect]
     Active Substance: DOCETAXEL
     Dosage: 136?140 MG
     Route: 042
     Dates: start: 20141208, end: 20141208

REACTIONS (2)
  - Alopecia [Not Recovered/Not Resolved]
  - Psychological trauma [Unknown]

NARRATIVE: CASE EVENT DATE: 201410
